FAERS Safety Report 19934879 (Version 1)
Quarter: 2021Q4

REPORT INFORMATION
  Report Type: Report from Study
  Country: US (occurrence: US)
  Receive Date: 20211008
  Receipt Date: 20211008
  Transmission Date: 20220303
  Serious: Yes (Death, Hospitalization, Other)
  Sender: FDA-Public Use
  Company Number: US-PFIZER INC-2021581425

PATIENT
  Age: 64 Year
  Sex: Female

DRUGS (6)
  1. IBRANCE [Suspect]
     Active Substance: PALBOCICLIB
     Indication: Breast cancer female
     Dosage: 125 MG, CYCLIC (DAILY FOR 21 DAYS ON, 7 DAYS OFF)
     Route: 048
     Dates: start: 20210516
  2. IBRANCE [Suspect]
     Active Substance: PALBOCICLIB
     Dosage: 125 MG, CYCLIC (125MG DAILY FOR 21 DAYS ON, 7 DAYS OFF)
     Route: 048
     Dates: start: 20210622
  3. IBRANCE [Suspect]
     Active Substance: PALBOCICLIB
     Dosage: 125 MG, CYCLIC (125MG DAILY FOR 21 DAYS ON, 7 DAYS OFF)
     Route: 048
     Dates: start: 20210707, end: 20210713
  4. IBRANCE [Suspect]
     Active Substance: PALBOCICLIB
     Dosage: 125 MG, CYCLIC (125MG DAILY FOR 21 DAYS ON, 7 DAYS OFF)
     Route: 048
  5. IBRANCE [Suspect]
     Active Substance: PALBOCICLIB
     Dosage: 125 MG, CYCLIC (125MG DAILY FOR 21 DAYS ON, 7 DAYS OFF)
     Route: 048
     Dates: start: 20210812
  6. LETROZOLE [Concomitant]
     Active Substance: LETROZOLE
     Indication: Breast cancer
     Dosage: UNK, DAILY
     Route: 048

REACTIONS (19)
  - Death [Fatal]
  - Fatigue [Unknown]
  - Pain [Unknown]
  - Oedema peripheral [Unknown]
  - Constipation [Unknown]
  - Confusional state [Unknown]
  - Cerebral haematoma [Unknown]
  - Loss of consciousness [Unknown]
  - Dyspnoea [Unknown]
  - Rectal haemorrhage [Unknown]
  - Faecaloma [Unknown]
  - Unresponsive to stimuli [Unknown]
  - Product dose omission issue [Unknown]
  - Chromaturia [Unknown]
  - Discomfort [Unknown]
  - Emotional disorder [Unknown]
  - Alopecia [Not Recovered/Not Resolved]
  - Condition aggravated [Not Recovered/Not Resolved]
  - Psychomotor hyperactivity [Unknown]

NARRATIVE: CASE EVENT DATE: 20210501
